FAERS Safety Report 5235574-4 (Version None)
Quarter: 2007Q1

REPORT INFORMATION
  Report Type: 
  Country: None (occurrence: None)
  Receive Date: 20070208
  Receipt Date: 20070208
  Transmission Date: 20070707
  Serious: No
  Sender: FDA-Public Use
  Company Number: None

PATIENT
  Age: 62 Year
  Sex: Male
  Weight: 98.8842 kg

DRUGS (1)
  1. NIACIN [Suspect]
     Dosage: 500NG 1X DAILY PO
     Route: 048
     Dates: start: 20061201, end: 20070201

REACTIONS (4)
  - CHILLS [None]
  - HYPERHIDROSIS [None]
  - PYREXIA [None]
  - SKIN DISORDER [None]
